FAERS Safety Report 14410238 (Version 2)
Quarter: 2018Q1

REPORT INFORMATION
  Report Type: Spontaneous
  Country: US (occurrence: US)
  Receive Date: 20180119
  Receipt Date: 20180205
  Transmission Date: 20180509
  Serious: Yes (Death, Other)
  Sender: FDA-Public Use
  Company Number: US-ASTELLAS-2018US002815

PATIENT
  Age: 15 Month
  Sex: Male

DRUGS (6)
  1. PREDNISONE. [Suspect]
     Active Substance: PREDNISONE
     Indication: LIVER TRANSPLANT
     Dosage: 0.3 MG/KG, ONCE DAILY (OVER THE FIRST WEEK)
     Route: 048
  2. METHYLPREDNISOLONE. [Suspect]
     Active Substance: METHYLPREDNISOLONE
     Indication: LIVER TRANSPLANT
     Dosage: UNK UNK, UNKNOWN FREQ. (INITIATED INTRAOPERATIVELY)
     Route: 065
  3. TACROLIMUS. [Suspect]
     Active Substance: TACROLIMUS
     Indication: LIVER TRANSPLANT
     Dosage: UNK UNK, UNKNOWN FREQ. (TO ACHIEVE TROUGH LEVELS OF 10-12 NG/ML) (POSTOPERATIVE DAY 1)
     Route: 048
  4. TACROLIMUS. [Suspect]
     Active Substance: TACROLIMUS
     Dosage: UNK UNK, UNKNOWN FREQ. (TO ACHIEVE A TROUGH OF 3-5 NG/ML)
     Route: 065
  5. GANCICLOVIR. [Concomitant]
     Active Substance: GANCICLOVIR
     Indication: PROPHYLAXIS
     Dosage: UNK UNK, UNKNOWN FREQ.
     Route: 065
  6. PREDNISONE. [Suspect]
     Active Substance: PREDNISONE
     Dosage: 0.1 MG/KG, ONCE DAILY
     Route: 065

REACTIONS (7)
  - Epstein-Barr viraemia [Fatal]
  - Hypoxia [Unknown]
  - Adenovirus infection [Recovered/Resolved]
  - Pleural effusion [Unknown]
  - Cardiac failure [Unknown]
  - Post transplant lymphoproliferative disorder [Fatal]
  - Respiratory distress [Unknown]
